FAERS Safety Report 8280762-6 (Version None)
Quarter: 2012Q2

REPORT INFORMATION
  Report Type: 
  Country: None (occurrence: None)
  Receive Date: 20120412
  Receipt Date: 20120403
  Transmission Date: 20120825
  Serious: Yes (Hospitalization)
  Sender: FDA-Public Use
  Company Number: US-ABBOTT-12P-163-0921683-00

PATIENT
  Age: 75 Year
  Sex: Female

DRUGS (3)
  1. LIPITOR [Concomitant]
     Indication: BLOOD CHOLESTEROL INCREASED
     Dosage: 0.112 MG DAILY
     Route: 048
  2. HUMIRA [Suspect]
     Indication: RHEUMATOID ARTHRITIS
     Dates: end: 20111201
  3. THYROID MEDICATION [Concomitant]
     Indication: HYPOTHYROIDISM
     Dosage: 10 MG DAILY
     Route: 048

REACTIONS (3)
  - POLLAKIURIA [None]
  - PAIN [None]
  - BACK PAIN [None]
